FAERS Safety Report 6132568-1 (Version None)
Quarter: 2009Q1

REPORT INFORMATION
  Report Type: 
  Country: None (occurrence: None)
  Receive Date: 20090324
  Receipt Date: 20090309
  Transmission Date: 20090719
  Serious: Yes (Hospitalization)
  Sender: FDA-Public Use
  Company Number: 2009S1004355

PATIENT
  Age: 27 Year
  Sex: Female

DRUGS (4)
  1. CITALOPRAM HYDROBROMIDE [Suspect]
     Indication: PHOBIA OF EXAMS
     Dosage: 20 MG;DAILY;ORAL ; 10 MG;DAILY
     Route: 048
     Dates: start: 20090207, end: 20090210
  2. ALVESCO [Concomitant]
  3. OXIS /00958001/ [Concomitant]
  4. SALBUTAMOL [Concomitant]

REACTIONS (5)
  - DIZZINESS [None]
  - DRUG INTOLERANCE [None]
  - FALL [None]
  - NAUSEA [None]
  - PANIC ATTACK [None]
